FAERS Safety Report 23786801 (Version 2)
Quarter: 2024Q2

REPORT INFORMATION
  Report Type: Report from Study
  Country: JP (occurrence: JP)
  Receive Date: 20240426
  Receipt Date: 20240617
  Transmission Date: 20240715
  Serious: Yes (Other)
  Sender: FDA-Public Use
  Company Number: JP-VIIV HEALTHCARE LIMITED-JP2020JPN060253

PATIENT

DRUGS (2)
  1. DOLUTEGRAVIR [Suspect]
     Active Substance: DOLUTEGRAVIR
     Indication: HIV infection
     Dosage: 50 MG, 1D
     Route: 048
     Dates: start: 20190309
  2. DESCOVY [Suspect]
     Active Substance: EMTRICITABINE\TENOFOVIR ALAFENAMIDE FUMARATE
     Indication: HIV infection
     Dosage: 1 DF, 1D
     Route: 048
     Dates: start: 20190309

REACTIONS (5)
  - Urethritis gonococcal [Not Recovered/Not Resolved]
  - Tonsillitis [Recovering/Resolving]
  - Asthma [Recovering/Resolving]
  - Weight increased [Not Recovered/Not Resolved]
  - Urethritis chlamydial [Recovering/Resolving]

NARRATIVE: CASE EVENT DATE: 20200217
